FAERS Safety Report 8344256-1 (Version None)
Quarter: 2012Q2

REPORT INFORMATION
  Report Type: 
  Country: None (occurrence: None)
  Receive Date: 20120508
  Receipt Date: 20080813
  Transmission Date: 20120825
  Serious: No
  Sender: FDA-Public Use
  Company Number: US-TEVA-US024370

PATIENT
  Sex: Male
  Weight: 62 kg

DRUGS (9)
  1. TREANDA [Suspect]
     Dosage: 34 MG IN 500 ML
     Route: 042
  2. TREANDA [Suspect]
     Dosage: 34 MG IN 500 ML
     Route: 042
  3. KYTRIL [Concomitant]
     Indication: PREMEDICATION
     Dosage: 1 MILLIGRAM;
     Route: 048
  4. TREANDA [Suspect]
     Dosage: 34 MG IN 500 ML (FOURTH CYCLE)
     Route: 042
     Dates: start: 20080812, end: 20080812
  5. THALIDOMIDE [Concomitant]
     Dosage: 100 MILLIGRAM; GIVEN SAME DAYS AS TREANDA
     Route: 048
  6. EMEND [Concomitant]
     Indication: PREMEDICATION
     Dosage: 80 MILLIGRAM;
     Route: 048
  7. TREANDA [Suspect]
     Dosage: 34 MG IN 500 ML
     Route: 042
  8. VANCOMYCIN [Concomitant]
     Indication: ANTIBIOTIC THERAPY
     Dosage: 1.5 GRAM;
     Route: 042
  9. VELCADE [Concomitant]
     Dosage: 1.7 MILLIGRAM;
     Route: 030
     Dates: start: 20080809

REACTIONS (1)
  - INFUSION SITE EXTRAVASATION [None]
